FAERS Safety Report 13900749 (Version 1)
Quarter: 2017Q3

REPORT INFORMATION
  Report Type: Spontaneous
  Country: FR (occurrence: FR)
  Receive Date: 20170823
  Receipt Date: 20170823
  Transmission Date: 20171127
  Serious: Yes (Other)
  Sender: FDA-Public Use
  Company Number: FR-BAXTER-2017BAX030402

PATIENT
  Age: 56 Year
  Sex: Male

DRUGS (6)
  1. PREDNISONE. [Suspect]
     Active Substance: PREDNISONE
     Indication: PREMEDICATION
     Dosage: PRE-CHEMOTHERAPY
     Route: 065
     Dates: start: 2017, end: 2017
  2. ENDOXAN 1000 MG, POUDRE POUR SOLUTION INJECTABLE [Suspect]
     Active Substance: CYCLOPHOSPHAMIDE
     Dosage: ON DAY 15 (1540 MG/WEEK)
     Route: 042
     Dates: start: 20170714, end: 20170714
  3. KIDROLASE [Suspect]
     Active Substance: ASPARAGINASE
     Indication: ACUTE LYMPHOCYTIC LEUKAEMIA
     Dosage: ON DAY 8, DAY 10, DAY 12, DAY 20, DAY 22 AND DAY 24
     Route: 042
     Dates: start: 20170707, end: 20170721
  4. ENDOXAN 1000 MG, POUDRE POUR SOLUTION INJECTABLE [Suspect]
     Active Substance: CYCLOPHOSPHAMIDE
     Indication: ACUTE LYMPHOCYTIC LEUKAEMIA
     Dosage: ON DAY 1 (1540 MG/WEEK)
     Route: 042
     Dates: start: 20170630, end: 20170630
  5. CERUBIDINE [Suspect]
     Active Substance: DAUNORUBICIN HYDROCHLORIDE
     Indication: ACUTE LYMPHOCYTIC LEUKAEMIA
     Dosage: ALSO REPORTED AS 60MG, ON DAY 1, DAY 2, DAY 3, DAY 15 AND DAY 16
     Route: 042
     Dates: start: 20170630, end: 20170715
  6. VINCRISTINE TEVA [Suspect]
     Active Substance: VINCRISTINE
     Indication: ACUTE LYMPHOCYTIC LEUKAEMIA
     Dosage: ON DAY 1, DAY 8, DAY 15 AND DAY 22
     Route: 042
     Dates: start: 20170630, end: 20170721

REACTIONS (6)
  - Disseminated intravascular coagulation [Unknown]
  - Hepatic steatosis [Recovering/Resolving]
  - Liver disorder [Unknown]
  - Hepatomegaly [Unknown]
  - Sepsis [Unknown]
  - Intra-abdominal fluid collection [Unknown]

NARRATIVE: CASE EVENT DATE: 20170711
